APPROVED DRUG PRODUCT: FAMOTIDINE
Active Ingredient: FAMOTIDINE
Strength: 10MG
Dosage Form/Route: TABLET;ORAL
Application: A206531 | Product #001
Applicant: AUROBINDO PHARMA LTD
Approved: Apr 26, 2016 | RLD: No | RS: No | Type: OTC